FAERS Safety Report 24846596 (Version 1)
Quarter: 2025Q1

REPORT INFORMATION
  Report Type: Spontaneous
  Country: FR (occurrence: FR)
  Receive Date: 20250115
  Receipt Date: 20250115
  Transmission Date: 20250408
  Serious: Yes (Hospitalization)
  Sender: EISAI
  Company Number: None

PATIENT
  Age: 60 Year
  Sex: Male
  Weight: 100 kg

DRUGS (4)
  1. LENVATINIB [Suspect]
     Active Substance: LENVATINIB
     Indication: Chromophobe renal cell carcinoma
     Route: 048
     Dates: start: 20230823, end: 20240109
  2. LENVATINIB [Suspect]
     Active Substance: LENVATINIB
     Dosage: 20 MG/DAY WITH A 3-DAY BREAK EVERY 2-3 WEEKS
     Route: 048
     Dates: start: 20240110, end: 20240312
  3. LENVATINIB [Suspect]
     Active Substance: LENVATINIB
     Dosage: 20 MG/DAY FOR 2 WEEKS THEN 1 WEEK BREAK
     Route: 048
     Dates: start: 20240313, end: 20240801
  4. LENVATINIB [Suspect]
     Active Substance: LENVATINIB
     Dosage: 20 MG/DAY FOR 2 WEEKS THEN 1-WEEK BREAK
     Route: 048
     Dates: start: 20240918, end: 20241204

REACTIONS (1)
  - Acute coronary syndrome [Recovered/Resolved]

NARRATIVE: CASE EVENT DATE: 20241103
